FAERS Safety Report 18536307 (Version 1)
Quarter: 2020Q4

REPORT INFORMATION
  Report Type: Spontaneous
  Country: US (occurrence: US)
  Receive Date: 20201124
  Receipt Date: 20201124
  Transmission Date: 20210114
  Serious: Yes (Other)
  Sender: FDA-Public Use
  Company Number: US-ALVOGEN-2020-ALVOGEN-115167

PATIENT
  Age: 55 Year
  Sex: Female

DRUGS (1)
  1. GRALISE [Suspect]
     Active Substance: GABAPENTIN
     Indication: NECK PAIN
     Dosage: STRENGTH: 300 MG
     Route: 048

REACTIONS (4)
  - Pulmonary hypertension [Unknown]
  - Osteoporosis [Unknown]
  - Rapid eye movement sleep behaviour disorder [Unknown]
  - Fall [Unknown]
